FAERS Safety Report 23258887 (Version 1)
Quarter: 2023Q4

REPORT INFORMATION
  Report Type: Spontaneous
  Country: AL (occurrence: None)
  Receive Date: 20231203
  Receipt Date: 20231203
  Transmission Date: 20240110
  Serious: Yes (Life-Threatening, Disabling)
  Sender: FDA-Public Use
  Company Number: None

PATIENT
  Age: 41 Year
  Sex: Female
  Weight: 70 kg

DRUGS (15)
  1. LEVOFLOXACIN HEMIHYDRATE [Suspect]
     Active Substance: LEVOFLOXACIN
     Indication: Sinusitis
     Dosage: OTHER QUANTITY : 10 TABLET(S);?FREQUENCY : DAILY;?
     Route: 048
     Dates: start: 20230413, end: 20230422
  2. VITAMIN C [Concomitant]
     Active Substance: ASCORBIC ACID
  3. VITAMIN B1 [Concomitant]
     Active Substance: THIAMINE HYDROCHLORIDE
  4. VITAMIN B3 [Concomitant]
     Active Substance: NIACIN
  5. VITAMIN B6 [Concomitant]
     Active Substance: PYRIDOXINE HYDROCHLORIDE
  6. FOLIC ACID [Concomitant]
     Active Substance: FOLIC ACID
  7. VITAMIN B12 [Concomitant]
     Active Substance: CYANOCOBALAMIN
  8. VITAMIN D [Concomitant]
     Active Substance: VITAMIN D NOS
  9. FISH OIL [Concomitant]
     Active Substance: FISH OIL
  10. MAGNESIUM [Concomitant]
     Active Substance: MAGNESIUM
  11. DIETARY SUPPLEMENT\UBIDECARENONE [Concomitant]
     Active Substance: DIETARY SUPPLEMENT\UBIDECARENONE
  12. HERBALS\TURMERIC [Concomitant]
     Active Substance: HERBALS\TURMERIC
  13. GINGER [Concomitant]
     Active Substance: GINGER
  14. HERBALS [Concomitant]
     Active Substance: HERBALS
  15. ROYAL JELLY [Concomitant]
     Active Substance: ROYAL JELLY

REACTIONS (11)
  - Photopsia [None]
  - Blepharospasm [None]
  - Gait disturbance [None]
  - Fatigue [None]
  - Pain in extremity [None]
  - Pain in extremity [None]
  - Muscle spasms [None]
  - Muscle contractions involuntary [None]
  - Dyskinesia [None]
  - Bedridden [None]
  - Influenza [None]

NARRATIVE: CASE EVENT DATE: 20230413
